FAERS Safety Report 5290588-3 (Version None)
Quarter: 2007Q2

REPORT INFORMATION
  Report Type: 
  Country: None (occurrence: None)
  Receive Date: 20070405
  Receipt Date: 20070405
  Transmission Date: 20071010
  Serious: Yes (Hospitalization)
  Sender: FDA-Public Use
  Company Number: None

PATIENT
  Age: 70 Year
  Sex: Female
  Weight: 58 kg

DRUGS (5)
  1. GEMZAR [Suspect]
     Indication: BREAST CANCER
     Dosage: 1272MG IV 010
     Route: 042
     Dates: start: 20061116
  2. ALENDRONATE SODIUM [Concomitant]
  3. DOCUSATE [Concomitant]
  4. CITALOPRAM HYDROBROMIDE [Concomitant]
  5. ATORVASTATIN CALCIUM [Concomitant]

REACTIONS (4)
  - COUGH [None]
  - DECREASED APPETITE [None]
  - MALAISE [None]
  - PYREXIA [None]
